FAERS Safety Report 12374790 (Version 2)
Quarter: 2016Q2

REPORT INFORMATION
  Report Type: Spontaneous
  Country: US (occurrence: US)
  Receive Date: 20160517
  Receipt Date: 20160601
  Transmission Date: 20160815
  Serious: No
  Sender: FDA-Public Use
  Company Number: US-PFIZER INC-2016241637

PATIENT
  Age: 67 Year
  Sex: Male
  Weight: 74 kg

DRUGS (1)
  1. VIAGRA [Suspect]
     Active Substance: SILDENAFIL CITRATE
     Indication: ERECTILE DYSFUNCTION
     Dosage: 1 DF, UNK
     Route: 048
     Dates: start: 2012

REACTIONS (1)
  - Hyperchlorhydria [Recovered/Resolved]

NARRATIVE: CASE EVENT DATE: 2012
